FAERS Safety Report 14599339 (Version 1)
Quarter: 2018Q1

REPORT INFORMATION
  Report Type: Spontaneous
  Country: IE (occurrence: IE)
  Receive Date: 20180305
  Receipt Date: 20180305
  Transmission Date: 20180509
  Serious: Yes (Death)
  Sender: FDA-Public Use
  Company Number: IE-IMPAX LABORATORIES, INC-2018-IPXL-00622

PATIENT
  Age: 42 Year
  Sex: Male

DRUGS (2)
  1. INTERFERON ALFA NOS [Suspect]
     Active Substance: INTERFERON ALFA-2A OR INTERFERON ALFA-2B
     Indication: ERDHEIM-CHESTER DISEASE
     Dosage: UNK
     Route: 065
  2. DESMOPRESSIN ACETATE IR [Suspect]
     Active Substance: DESMOPRESSIN ACETATE
     Indication: HYPERNATRAEMIA
     Dosage: UNK
     Route: 065

REACTIONS (1)
  - Erdheim-Chester disease [Fatal]
